FAERS Safety Report 10170445 (Version 1)
Quarter: 2014Q2

REPORT INFORMATION
  Report Type: Spontaneous
  Country: CN (occurrence: CN)
  Receive Date: 20140513
  Receipt Date: 20140513
  Transmission Date: 20141212
  Serious: Yes (Disabling)
  Sender: FDA-Public Use
  Company Number: CN-BAXTER-2014BAX023157

PATIENT
  Age: 53 Year
  Sex: Female
  Weight: 50 kg

DRUGS (2)
  1. 20% MANNITOL INJECTION [Suspect]
     Indication: INTRAOCULAR PRESSURE INCREASED
     Route: 041
     Dates: start: 20130718, end: 20130720
  2. ETAMSYLATE INJECTION [Concomitant]
     Indication: HYPHAEMA
     Route: 041
     Dates: start: 20130718, end: 20130720

REACTIONS (1)
  - Haematuria [Recovering/Resolving]
